FAERS Safety Report 6890696-7 (Version None)
Quarter: 2010Q3

REPORT INFORMATION
  Report Type: 
  Country: None (occurrence: None)
  Receive Date: 20100731
  Receipt Date: 20090213
  Transmission Date: 20110219
  Serious: No
  Sender: FDA-Public Use
  Company Number: US-PFIZER INC-2009170707

PATIENT
  Sex: Male
  Weight: 77 kg

DRUGS (4)
  1. LIPITOR [Suspect]
     Indication: LOW DENSITY LIPOPROTEIN INCREASED
     Dosage: 20 MG, 1X/DAY
     Dates: start: 20090108
  2. ACETYLSALICYLIC ACID SRT [Suspect]
     Dates: start: 20090101, end: 20090101
  3. LEXAPRO [Suspect]
     Indication: ANXIETY
     Dosage: UNK
     Dates: start: 20090101
  4. PRILOSEC [Concomitant]
     Dosage: UNK

REACTIONS (7)
  - ANXIETY [None]
  - FATIGUE [None]
  - FLUSHING [None]
  - NEUROPATHY PERIPHERAL [None]
  - PAIN [None]
  - PARAESTHESIA [None]
  - PRURITUS [None]
